FAERS Safety Report 7424074-9 (Version None)
Quarter: 2011Q2

REPORT INFORMATION
  Report Type: 
  Country: None (occurrence: None)
  Receive Date: 20110419
  Receipt Date: 20110406
  Transmission Date: 20111010
  Serious: Yes (Hospitalization)
  Sender: FDA-Public Use
  Company Number: JP-ELI_LILLY_AND_COMPANY-JP201104004371

PATIENT
  Age: 80 Year
  Sex: Female

DRUGS (3)
  1. CYMBALTA [Suspect]
     Indication: DEPRESSION
     Dosage: 20 MG, QD
     Route: 048
     Dates: start: 20110203, end: 20110228
  2. MENEST [Concomitant]
     Indication: PARKINSON'S DISEASE
     Dosage: 750 MG, QD
     Route: 048
  3. SYMMETREL [Concomitant]
     Indication: PARKINSON'S DISEASE
     Dosage: 100 MG, QD
     Route: 048
     Dates: end: 20110303

REACTIONS (3)
  - WITHDRAWAL SYNDROME [None]
  - CONVULSION [None]
  - DELIRIUM [None]
